FAERS Safety Report 12788984 (Version 3)
Quarter: 2017Q1

REPORT INFORMATION
  Report Type: Spontaneous
  Country: US (occurrence: US)
  Receive Date: 20160928
  Receipt Date: 20170117
  Transmission Date: 20170428
  Serious: No
  Sender: FDA-Public Use
  Company Number: US-PFIZER INC-2016453922

PATIENT
  Age: 68 Year
  Sex: Female

DRUGS (1)
  1. LYRICA [Suspect]
     Active Substance: PREGABALIN
     Indication: NEURALGIA
     Dosage: 50 MG, UNK (ONCE OR TWICE A DAY)

REACTIONS (8)
  - Swelling face [Recovering/Resolving]
  - Peripheral swelling [Unknown]
  - Abdominal distension [Unknown]
  - Visual acuity reduced [Unknown]
  - Eye swelling [Recovering/Resolving]
  - Exostosis [Unknown]
  - Joint swelling [Recovering/Resolving]
  - Product use issue [Unknown]
